FAERS Safety Report 21407005 (Version 2)
Quarter: 2024Q3

REPORT INFORMATION
  Report Type: Report from Study
  Country: MX (occurrence: MX)
  Receive Date: 20221004
  Receipt Date: 20240827
  Transmission Date: 20241016
  Serious: Yes (Life-Threatening)
  Sender: NOVARTIS
  Company Number: MX-NOVARTISPH-NVSC2022MX223500

PATIENT
  Age: 48 Year
  Sex: Female
  Weight: 56 kg

DRUGS (1)
  1. TASIGNA [Suspect]
     Active Substance: NILOTINIB
     Indication: Chronic myeloid leukaemia
     Dosage: UNK
     Route: 048
     Dates: start: 200209

REACTIONS (8)
  - Hypovolaemic shock [Unknown]
  - Somnolence [Unknown]
  - White blood cell count increased [Unknown]
  - Suspected COVID-19 [Unknown]
  - Fatigue [Recovered/Resolved]
  - Headache [Recovered/Resolved]
  - Bone pain [Recovered/Resolved]
  - Malaise [Recovered/Resolved]

NARRATIVE: CASE EVENT DATE: 20240728
